FAERS Safety Report 21617435 (Version 1)
Quarter: 2022Q4

REPORT INFORMATION
  Report Type: Spontaneous
  Country: CN (occurrence: CN)
  Receive Date: 20221119
  Receipt Date: 20221119
  Transmission Date: 20230113
  Serious: Yes (Other)
  Sender: FDA-Public Use
  Company Number: None

PATIENT
  Age: 5 Year
  Sex: Female
  Weight: 15 kg

DRUGS (4)
  1. CYCLOPHOSPHAMIDE [Suspect]
     Active Substance: CYCLOPHOSPHAMIDE
     Indication: Embryonal rhabdomyosarcoma
     Dosage: 1.2 G, QD, (DILUTED WITH 4:1 GLUCOSE AND SODIUM CHLORIDE 100ML )
     Route: 041
     Dates: start: 20220906, end: 20220906
  2. SODIUM CHLORIDE [Suspect]
     Active Substance: SODIUM CHLORIDE
     Indication: Medication dilution
     Dosage: 50 ML, QD, (USED TO DILUTE DACTINOMYCIN 0.66 MG)
     Route: 041
     Dates: start: 20220906, end: 20220906
  3. DEXTROSE\SODIUM CHLORIDE [Suspect]
     Active Substance: DEXTROSE\SODIUM CHLORIDE
     Indication: Medication dilution
     Dosage: 100 ML, QD, (USED TO DILUTE CYCLOPHOSPHAMIDE 1.2G )
     Route: 041
     Dates: start: 20220906, end: 20220906
  4. DACTINOMYCIN [Suspect]
     Active Substance: DACTINOMYCIN
     Indication: Embryonal rhabdomyosarcoma
     Dosage: 0.66 MG, QD, (DILUTED WITH 0.9% NS 50ML)
     Route: 041
     Dates: start: 20220906, end: 20220906

REACTIONS (1)
  - Myelosuppression [Recovering/Resolving]

NARRATIVE: CASE EVENT DATE: 20220913
